FAERS Safety Report 13590676 (Version 1)
Quarter: 2017Q2

REPORT INFORMATION
  Report Type: Spontaneous
  Country: FI (occurrence: FI)
  Receive Date: 20170530
  Receipt Date: 20170530
  Transmission Date: 20170830
  Serious: Yes (Other)
  Sender: FDA-Public Use
  Company Number: FI-PFIZER INC-2017234322

PATIENT
  Age: 36 Year
  Sex: Male
  Weight: 106.4 kg

DRUGS (14)
  1. TREXAN [Suspect]
     Active Substance: METHOTREXATE SODIUM
     Dosage: 20 MG, WEEKLY
     Dates: end: 20150812
  2. BURANA [Concomitant]
     Active Substance: IBUPROFEN
     Dosage: 600 MG, AS NEEDED (600 MG 1-3 TIMES A DAY AS NEEDED)
  3. PREDNISOLON [Concomitant]
     Active Substance: PREDNISOLONE
     Dosage: UNK
  4. TREXAN [Suspect]
     Active Substance: METHOTREXATE SODIUM
     Indication: ARTHROPATHY
     Dosage: UNK
     Dates: start: 199808
  5. SOMAC [Concomitant]
     Active Substance: PANTOPRAZOLE SODIUM
     Dosage: 20 MG, 1X/DAY
  6. ARTELAC [Concomitant]
     Active Substance: HYPROMELLOSES
     Dosage: UNK
  7. FOLIC ACID. [Concomitant]
     Active Substance: FOLIC ACID
     Indication: FOLATE DEFICIENCY
     Dosage: UNK
  8. KALCIPOS-D [Concomitant]
     Active Substance: CALCIUM CARBONATE\CHOLECALCIFEROL
     Dosage: 1-2 PER DAY
  9. BISOPROLOL RATIOPHARM [Concomitant]
     Active Substance: BISOPROLOL
     Dosage: 5 MG, 1X/DAY
  10. EMGESAN [Concomitant]
     Dosage: 1 DF, AS NEEDED (1 TABLET 1-2 TIMES A DAY AS NEEDED)
  11. HUMIRA [Suspect]
     Active Substance: ADALIMUMAB
     Indication: ARTHROPATHY
     Dosage: 40 MG, WEEKLY
     Dates: start: 20060502, end: 20150812
  12. LACRI-LUBE [Concomitant]
     Dosage: UNK
  13. TREXAN [Suspect]
     Active Substance: METHOTREXATE SODIUM
     Dosage: UNK
     Dates: start: 2002
  14. LOSARTAN ORION [Concomitant]
     Dosage: 100 MG, 1X/DAY

REACTIONS (4)
  - Immune thrombocytopenic purpura [Unknown]
  - Nausea [Unknown]
  - Lymphopenia [Unknown]
  - Abdominal discomfort [Unknown]

NARRATIVE: CASE EVENT DATE: 199808
